FAERS Safety Report 12206910 (Version 2)
Quarter: 2016Q2

REPORT INFORMATION
  Report Type: Report from Study
  Country: AR (occurrence: AR)
  Receive Date: 20160324
  Receipt Date: 20160406
  Transmission Date: 20160815
  Serious: Yes (Death, Hospitalization)
  Sender: FDA-Public Use
  Company Number: PHHY2016AR038940

PATIENT
  Age: 7 Year
  Sex: Female

DRUGS (2)
  1. EXJADE [Suspect]
     Active Substance: DEFERASIROX
     Indication: BONE MARROW FAILURE
     Dosage: 500 MG, QD
     Route: 065
     Dates: start: 201501, end: 201507
  2. CYCLOSPORINE. [Concomitant]
     Active Substance: CYCLOSPORINE
     Indication: PRODUCT USED FOR UNKNOWN INDICATION
     Route: 065

REACTIONS (3)
  - Multiple organ dysfunction syndrome [Fatal]
  - Nosocomial infection [Fatal]
  - Platelet count decreased [Unknown]

NARRATIVE: CASE EVENT DATE: 201507
